FAERS Safety Report 17614842 (Version 1)
Quarter: 2020Q2

REPORT INFORMATION
  Report Type: Spontaneous
  Country: SE (occurrence: SE)
  Receive Date: 20200402
  Receipt Date: 20200402
  Transmission Date: 20200713
  Serious: Yes (Other)
  Sender: FDA-Public Use
  Company Number: SE-TEVA-2020-SE-1215810

PATIENT
  Age: 77 Year
  Sex: Female

DRUGS (7)
  1. ATORVASTATIN [Concomitant]
     Active Substance: ATORVASTATIN
  2. RAMIPRIL. [Concomitant]
     Active Substance: RAMIPRIL
  3. XARELTO [Concomitant]
     Active Substance: RIVAROXABAN
  4. EZETIMIBE. [Suspect]
     Active Substance: EZETIMIBE
     Indication: BLOOD CHOLESTEROL INCREASED
     Dosage: 10 MG
     Route: 048
     Dates: start: 20190618, end: 20200211
  5. OMEPRAZOL [Concomitant]
     Active Substance: OMEPRAZOLE
  6. TROMBYL [Concomitant]
     Active Substance: ASPIRIN
  7. METOPROLOL. [Concomitant]
     Active Substance: METOPROLOL

REACTIONS (1)
  - Pruritus [Unknown]

NARRATIVE: CASE EVENT DATE: 2020
